FAERS Safety Report 7919136-3 (Version None)
Quarter: 2011Q4

REPORT INFORMATION
  Report Type: 
  Country: None (occurrence: None)
  Receive Date: 20111117
  Receipt Date: 20111107
  Transmission Date: 20120403
  Serious: Yes (Hospitalization)
  Sender: FDA-Public Use
  Company Number: US-ROCHE-1011218

PATIENT

DRUGS (5)
  1. CARBOPLATIN [Suspect]
     Indication: TRANSITIONAL CELL CARCINOMA
     Dosage: AUC IV OVER 15 MINS ON DAY 1 EVERY 21.
     Route: 042
     Dates: start: 20020429
  2. HERCEPTIN [Suspect]
     Dosage: OVER 30-90 MINS ON DAY 1 , 8, 15 EVERY 21 DAYS.
  3. GEMCITABINE HYDROCHLORIDE [Suspect]
     Indication: TRANSITIONAL CELL CARCINOMA
     Dosage: OVER 30 MINUTES ON DAY 1 AND 8 , EVERY 21.
     Route: 042
     Dates: start: 20020429
  4. HERCEPTIN [Suspect]
     Indication: TRANSITIONAL CELL CARCINOMA
     Dosage: DAY 1 OF CYCLE.
     Route: 042
     Dates: start: 20020429
  5. PACLITAXEL [Suspect]
     Indication: TRANSITIONAL CELL CARCINOMA
     Dosage: OVER 3 HRS ON DAY 1.
     Route: 042
     Dates: start: 20020429

REACTIONS (1)
  - DEHYDRATION [None]
